FAERS Safety Report 16815491 (Version 9)
Quarter: 2022Q2

REPORT INFORMATION
  Report Type: Other
  Country: CA (occurrence: CA)
  Receive Date: 20190917
  Receipt Date: 20220627
  Transmission Date: 20220721
  Serious: Yes (Death, Hospitalization)
  Sender: FDA-Public Use
  Company Number: CA-002147023-PHHY2019CA210725

PATIENT
  Age: 83 Year
  Sex: Female

DRUGS (11)
  1. XOLAIR [Suspect]
     Active Substance: OMALIZUMAB
     Indication: Chronic spontaneous urticaria
     Route: 058
     Dates: start: 20190711
  2. XOLAIR [Suspect]
     Active Substance: OMALIZUMAB
     Route: 058
     Dates: start: 20190808
  3. XOLAIR [Suspect]
     Active Substance: OMALIZUMAB
     Route: 058
     Dates: start: 20200805
  4. XOLAIR [Suspect]
     Active Substance: OMALIZUMAB
     Route: 058
     Dates: start: 20200528
  5. XOLAIR [Suspect]
     Active Substance: OMALIZUMAB
     Route: 058
     Dates: start: 20190521
  6. XOLAIR [Suspect]
     Active Substance: OMALIZUMAB
     Route: 058
     Dates: start: 20201229
  7. XOLAIR [Suspect]
     Active Substance: OMALIZUMAB
     Route: 058
     Dates: start: 20210201
  8. XOLAIR [Suspect]
     Active Substance: OMALIZUMAB
     Route: 058
  9. BISOPROLOL FUMARATE [Concomitant]
     Active Substance: BISOPROLOL FUMARATE
     Indication: Cardiac disorder
     Route: 048
  10. AZITHROMYCIN ANHYDROUS [Concomitant]
     Active Substance: AZITHROMYCIN ANHYDROUS
     Indication: Product used for unknown indication
     Route: 048
     Dates: start: 2017
  11. BILASTINE [Concomitant]
     Active Substance: BILASTINE
     Indication: Urticaria
     Route: 048
     Dates: start: 2018

REACTIONS (22)
  - Urticaria [Unknown]
  - Malaise [Unknown]
  - Pneumonia [Unknown]
  - Therapeutic product effect incomplete [Unknown]
  - Fall [Unknown]
  - Dizziness [Unknown]
  - Confusional state [Unknown]
  - Fatigue [Unknown]
  - Inappropriate schedule of product administration [Unknown]
  - Ear pruritus [Unknown]
  - Pruritus [Not Recovered/Not Resolved]
  - Contusion [Unknown]
  - Emphysema [Unknown]
  - Respiration abnormal [Unknown]
  - Cough [Unknown]
  - Dyspnoea [Unknown]
  - Syncope [Unknown]
  - Cerebrovascular accident [Not Recovered/Not Resolved]
  - Product supply issue [Unknown]
  - Incorrect dose administered [Unknown]
  - Tachycardia [Unknown]
  - Death [Fatal]

NARRATIVE: CASE EVENT DATE: 20190830
